FAERS Safety Report 23784764 (Version 1)
Quarter: 2024Q2

REPORT INFORMATION
  Report Type: Spontaneous
  Country: CA (occurrence: CA)
  Receive Date: 20240425
  Receipt Date: 20240425
  Transmission Date: 20240716
  Serious: Yes (Life-Threatening, Hospitalization)
  Sender: FDA-Public Use
  Company Number: CA-TEVA-VS-3188429

PATIENT
  Age: 3 Year
  Sex: Male

DRUGS (4)
  1. METHOTREXATE [Suspect]
     Active Substance: METHOTREXATE
     Indication: Chemotherapy
     Dosage: DOSE FORM: NOT SPECIFIED
     Route: 065
  2. DEXAMETHASONE [Concomitant]
     Active Substance: DEXAMETHASONE
     Dosage: DOSE FORM: NOT SPECIFIED
     Route: 065
  3. VINCRISTINE [Suspect]
     Active Substance: VINCRISTINE
     Indication: Chemotherapy
     Dosage: DOSE FORM: NOT SPECIFIED
     Route: 065
  4. DOXORUBICIN [Suspect]
     Active Substance: DOXORUBICIN
     Indication: Chemotherapy
     Route: 065

REACTIONS (2)
  - Febrile neutropenia [Recovered/Resolved]
  - Decreased appetite [Recovered/Resolved]
